FAERS Safety Report 7844980-0 (Version None)
Quarter: 2011Q4

REPORT INFORMATION
  Report Type: 
  Country: None (occurrence: None)
  Receive Date: 20111025
  Receipt Date: 20111017
  Transmission Date: 20120403
  Serious: Yes (Other)
  Sender: FDA-Public Use
  Company Number: HU-BAYER-2011-100094

PATIENT
  Sex: Female

DRUGS (1)
  1. YADINE [Suspect]
     Indication: CONTRACEPTION
     Dosage: 3 MG, QD
     Route: 048
     Dates: start: 20040101, end: 20110401

REACTIONS (2)
  - ABORTION SPONTANEOUS [None]
  - ANTEPARTUM HAEMORRHAGE [None]
